FAERS Safety Report 4968134-0 (Version None)
Quarter: 2006Q2

REPORT INFORMATION
  Report Type: 
  Country: None (occurrence: None)
  Receive Date: 20060410
  Receipt Date: 20060406
  Transmission Date: 20061013
  Serious: Yes (Hospitalization)
  Sender: FDA-Public Use
  Company Number: PHBS2006GT05122

PATIENT
  Age: 71 Year
  Sex: Female

DRUGS (3)
  1. DIOVAN [Suspect]
     Dosage: 40 MG/DAY
     Route: 048
     Dates: start: 20040101
  2. ATLANSIL [Concomitant]
     Dosage: 200 MG/DAY
     Route: 048
  3. FUROSEMIDE [Concomitant]
     Dosage: 20 MG/DAY
     Route: 048

REACTIONS (1)
  - MALIGNANT MELANOMA [None]
